FAERS Safety Report 6817107-1 (Version None)
Quarter: 2010Q3

REPORT INFORMATION
  Report Type: 
  Country: None (occurrence: None)
  Receive Date: 20100706
  Receipt Date: 20100625
  Transmission Date: 20110219
  Serious: Yes (Death, Hospitalization)
  Sender: FDA-Public Use
  Company Number: JP-ROCHE-703087

PATIENT
  Sex: Male
  Weight: 42 kg

DRUGS (13)
  1. AVASTIN [Suspect]
     Indication: COLON CANCER
     Route: 041
     Dates: start: 20090727
  2. IRINOTECAN HYDROCHLORIDE [Suspect]
     Indication: COLON CANCER METASTATIC
     Route: 041
     Dates: end: 20100419
  3. FLUOROURACIL [Suspect]
     Indication: COLON CANCER METASTATIC
     Dosage: NOTE: DOSAGE IS UNCERTAIN.
     Route: 040
     Dates: start: 20090728
  4. FLUOROURACIL [Suspect]
     Route: 040
     Dates: end: 20100419
  5. CALCIUM LEVOFOLINATE [Suspect]
     Indication: COLON CANCER METASTATIC
     Dosage: NOTE: DOSAGE IS UNCERTAIN.
     Route: 041
     Dates: start: 20090728
  6. CALCIUM LEVOFOLINATE [Suspect]
     Route: 041
     Dates: end: 20100419
  7. ELPLAT [Suspect]
     Indication: COLON CANCER METASTATIC
     Route: 041
     Dates: start: 20090728
  8. ASPIRIN [Concomitant]
     Route: 048
     Dates: end: 20100510
  9. DECADRON [Concomitant]
     Route: 048
     Dates: start: 20090728, end: 20100118
  10. DECADRON [Concomitant]
     Route: 048
     Dates: start: 20100302, end: 20100419
  11. INDISETRON HYDROCHLORIDE [Concomitant]
     Dosage: TAKEN AS NEEDED, DRUG REPORTED AS SINSERON
     Route: 048
     Dates: start: 20090728, end: 20100419
  12. LOXONIN [Concomitant]
     Dosage: TAKEN AS NEEDED
     Route: 048
     Dates: start: 20091120
  13. GASTER D [Concomitant]
     Route: 048
     Dates: start: 20090908

REACTIONS (3)
  - GASTROINTESTINAL PERFORATION [None]
  - INTESTINAL OBSTRUCTION [None]
  - PYREXIA [None]
